FAERS Safety Report 5704524-6 (Version None)
Quarter: 2008Q2

REPORT INFORMATION
  Report Type: 
  Country: None (occurrence: None)
  Receive Date: 20080409
  Receipt Date: 20080325
  Transmission Date: 20081010
  Serious: Yes (Other)
  Sender: FDA-Public Use
  Company Number: 2006JP004974

PATIENT
  Age: 15 Year
  Sex: Male

DRUGS (5)
  1. PROGRAF [Suspect]
     Indication: BONE MARROW TRANSPLANT
  2. FUNGUARD(MICAFUNGIN) INJECTION [Suspect]
     Indication: ASPERGILLOSIS
     Dosage: IV DRIP
     Route: 041
  3. METHYLPREDNISOLONE [Concomitant]
  4. ITRACONAZOLE (INTRACONAZOLE) [Concomitant]
  5. VORICONAZOLE (VORICONAZOLE) [Concomitant]

REACTIONS (4)
  - BRONCHOPULMONARY ASPERGILLOSIS [None]
  - DRUG LEVEL DECREASED [None]
  - ENCEPHALOPATHY [None]
  - PNEUMOTHORAX [None]
